FAERS Safety Report 21205616 (Version 1)
Quarter: 2022Q3

REPORT INFORMATION
  Report Type: Spontaneous
  Country: US (occurrence: US)
  Receive Date: 20220812
  Receipt Date: 20220812
  Transmission Date: 20221026
  Serious: No
  Sender: FDA-Public Use
  Company Number: US-STRIDES ARCOLAB LIMITED-2022SP006032

PATIENT
  Age: 77 Year
  Sex: Female

DRUGS (30)
  1. OMEGA-3-ACID ETHYL ESTERS [Suspect]
     Active Substance: OMEGA-3-ACID ETHYL ESTERS
     Indication: Supplementation therapy
     Dosage: UNK (PILL)
     Route: 065
  2. VITAMIN A [Suspect]
     Active Substance: VITAMIN A
     Indication: Supplementation therapy
     Dosage: UNK (PILL)
     Route: 065
  3. VITAMIN C [Suspect]
     Active Substance: ASCORBIC ACID
     Indication: Supplementation therapy
     Dosage: UNK (PILL)
     Route: 065
  4. VITAMIN D NOS [Suspect]
     Active Substance: VITAMIN D NOS
     Indication: Supplementation therapy
     Dosage: UNK (PILL)
     Route: 065
  5. VITAMIN E [Suspect]
     Active Substance: .ALPHA.-TOCOPHEROL
     Indication: Supplementation therapy
     Dosage: UNK (PILL)
     Route: 065
  6. VITAMIN K [Suspect]
     Active Substance: PHYTONADIONE
     Indication: Supplementation therapy
     Dosage: UNK (PILL)
     Route: 065
  7. VITAMIN B1 [Suspect]
     Active Substance: THIAMINE HYDROCHLORIDE
     Indication: Supplementation therapy
     Dosage: UNK (PILL)
     Route: 065
  8. VITAMIN B2 [Suspect]
     Active Substance: RIBOFLAVIN
     Indication: Supplementation therapy
     Dosage: UNK (PILL)
     Route: 065
  9. VITAMIN B3 [Suspect]
     Active Substance: NIACIN
     Indication: Supplementation therapy
     Dosage: UNK (PILL)
     Route: 065
  10. VITAMIN B6 [Suspect]
     Active Substance: PYRIDOXINE HYDROCHLORIDE
     Indication: Supplementation therapy
     Dosage: UNK (PILL)
     Route: 065
  11. BIOTIN [Suspect]
     Active Substance: BIOTIN
     Indication: Supplementation therapy
     Dosage: UNK (PILL)
     Route: 065
  12. VITAMIN B12 [Suspect]
     Active Substance: CYANOCOBALAMIN
     Indication: Supplementation therapy
     Dosage: UNK (PILL)
     Route: 065
  13. VITAMIN B COMPLEX [Suspect]
     Active Substance: CYANOCOBALAMIN\DEXPANTHENOL\NIACINAMIDE\PYRIDOXINE HYDROCHLORIDE\RIBOFLAVIN 5^-PHOSPHATE SODIUM\THIA
     Indication: Supplementation therapy
     Dosage: UNK (PILL)
     Route: 065
  14. FOLATE SODIUM [Suspect]
     Active Substance: FOLATE SODIUM
     Indication: Supplementation therapy
     Dosage: UNK (PILL)
     Route: 065
  15. ZINC [Suspect]
     Active Substance: ZINC
     Indication: Supplementation therapy
     Dosage: UNK (PILL)
     Route: 065
  16. COENZYME Q10 [Suspect]
     Active Substance: DIETARY SUPPLEMENT\UBIDECARENONE
     Indication: Supplementation therapy
     Dosage: UNK (PILL)
     Route: 065
  17. SELENIUM [Suspect]
     Active Substance: SELENIUM
     Indication: Supplementation therapy
     Dosage: UNK (PILL)
     Route: 065
  18. CHROMIUM [Suspect]
     Active Substance: CHROMIC CHLORIDE\CHROMIUM
     Indication: Supplementation therapy
     Dosage: UNK (PILL)
     Route: 065
  19. MENAQUINONE 6 [Suspect]
     Active Substance: MENAQUINONE 6
     Indication: Supplementation therapy
     Dosage: UNK (PILL)
     Route: 065
  20. ACETYL L-TYROSINE [Suspect]
     Active Substance: ACETYL L-TYROSINE
     Indication: Supplementation therapy
     Dosage: UNK (PILL)
     Route: 065
  21. ALPHA LIPOIC ACID [Suspect]
     Active Substance: .ALPHA.-LIPOIC ACID
     Indication: Supplementation therapy
     Dosage: UNK (PILL)
     Route: 065
  22. MAGNESIUM OXIDE [Suspect]
     Active Substance: MAGNESIUM OXIDE
     Indication: Supplementation therapy
     Dosage: UNK (PILL)
     Route: 065
  23. LEVOTHYROXINE SODIUM [Concomitant]
     Active Substance: LEVOTHYROXINE SODIUM
     Indication: Hypothyroidism
     Dosage: 88 MICROGRAM, UNKNOWN
     Route: 065
  24. HERBALS\TURMERIC [Concomitant]
     Active Substance: HERBALS\TURMERIC
     Indication: Product used for unknown indication
     Dosage: UNK
     Route: 065
  25. CAMU CAMU [MYRCIARIA DUBIA] [Concomitant]
     Indication: Product used for unknown indication
     Dosage: UNK
     Route: 065
  26. CINNAMON\HERBALS [Concomitant]
     Active Substance: CINNAMON\HERBALS
     Indication: Product used for unknown indication
     Dosage: UNK
     Route: 065
  27. SAFFRON [Concomitant]
     Active Substance: SAFFRON
     Indication: Product used for unknown indication
     Dosage: UNK
     Route: 065
  28. ASTAXANTHIN [Concomitant]
     Active Substance: ASTAXANTHIN
     Indication: Product used for unknown indication
     Dosage: UNK
     Route: 065
  29. RHODIOLA [RHODIOLA ROSEA] [Concomitant]
     Indication: Product used for unknown indication
     Dosage: UNK
     Route: 065
  30. SPIRULINA + CHLORELLA [Concomitant]
     Indication: Product used for unknown indication
     Dosage: UNK
     Route: 065

REACTIONS (1)
  - Diarrhoea [Recovered/Resolved]
